FAERS Safety Report 16668991 (Version 1)
Quarter: 2019Q3

REPORT INFORMATION
  Report Type: Spontaneous
  Country: US (occurrence: US)
  Receive Date: 20190805
  Receipt Date: 20190805
  Transmission Date: 20191004
  Serious: Yes (Hospitalization)
  Sender: FDA-Public Use
  Company Number: US-MAYNE PHARMA-2019MYN000637

PATIENT

DRUGS (1)
  1. CLOZAPINE. [Suspect]
     Active Substance: CLOZAPINE
     Indication: PSYCHOTIC DISORDER
     Dosage: 50 MG, UNK
     Route: 048
     Dates: start: 20160914

REACTIONS (7)
  - Dizziness [Unknown]
  - Catatonia [Unknown]
  - Obsessive-compulsive disorder [Unknown]
  - Hospitalisation [Unknown]
  - Nonspecific reaction [Unknown]
  - Psychotic disorder [Unknown]
  - Thinking abnormal [Unknown]
